FAERS Safety Report 4426408-6 (Version None)
Quarter: 2004Q3

REPORT INFORMATION
  Report Type: 
  Country: None (occurrence: None)
  Receive Date: 20040811
  Receipt Date: 20040805
  Transmission Date: 20050211
  Serious: Yes (Hospitalization)
  Sender: FDA-Public Use
  Company Number: 2004CG01545

PATIENT
  Age: 74 Year
  Sex: Male
  Weight: 74 kg

DRUGS (1)
  1. CASODEX [Suspect]
     Indication: PROSTATE CANCER
     Dates: start: 20040215

REACTIONS (4)
  - HOT FLUSH [None]
  - HYPERTENSION [None]
  - LOSS OF CONSCIOUSNESS [None]
  - MALAISE [None]
